FAERS Safety Report 6383458-0 (Version None)
Quarter: 2009Q4

REPORT INFORMATION
  Report Type: 
  Country: None (occurrence: None)
  Receive Date: 20091001
  Receipt Date: 20090922
  Transmission Date: 20100525
  Serious: Yes (Hospitalization, Other)
  Sender: FDA-Public Use
  Company Number: PHHY2009CH40597

PATIENT
  Age: 34 Year
  Sex: Male
  Weight: 85 kg

DRUGS (7)
  1. TEGRETOL-XR [Suspect]
     Indication: IMPULSE-CONTROL DISORDER
     Dosage: 300 MG, BID
     Route: 048
     Dates: start: 20080927
  2. TEGRETOL-XR [Interacting]
     Dosage: 400 MG/DAY
     Route: 048
     Dates: start: 20090501
  3. FLUOXETINE [Interacting]
     Indication: BIPOLAR DISORDER
     Dosage: 100 MG/D
     Route: 048
     Dates: start: 20081110, end: 20081216
  4. FLUOXETINE [Interacting]
     Dosage: 140 MG/D
     Route: 048
     Dates: start: 20081217
  5. TEMESTA [Concomitant]
     Indication: BIPOLAR DISORDER
     Dosage: 1 MG, PRN
  6. TEMESTA [Concomitant]
     Dosage: UNK
  7. CONDROSULF [Concomitant]
     Dosage: 1 DF, UNK

REACTIONS (15)
  - ANTICONVULSANT DRUG LEVEL INCREASED [None]
  - ANTIDEPRESSANT DRUG LEVEL INCREASED [None]
  - APHASIA [None]
  - ATAXIA [None]
  - BALANCE DISORDER [None]
  - DEPRESSED LEVEL OF CONSCIOUSNESS [None]
  - DIPLOPIA [None]
  - DRUG INEFFECTIVE [None]
  - DRUG INTERACTION [None]
  - DRUG TOXICITY [None]
  - DYSARTHRIA [None]
  - GAIT DISTURBANCE [None]
  - NAUSEA [None]
  - PARAESTHESIA [None]
  - ROAD TRAFFIC ACCIDENT [None]
